FAERS Safety Report 7497260-X (Version None)
Quarter: 2011Q2

REPORT INFORMATION
  Report Type: 
  Country: None (occurrence: None)
  Receive Date: 20110523
  Receipt Date: 20110513
  Transmission Date: 20111010
  Serious: Yes (Hospitalization, Other)
  Sender: FDA-Public Use
  Company Number: GB-ASTRAZENECA-2011SE28905

PATIENT

DRUGS (4)
  1. VINCRISTINE [Concomitant]
  2. DAUNORUBICIN HCL [Concomitant]
  3. SEROQUEL [Suspect]
     Route: 048
  4. ASPARAGINASE [Concomitant]

REACTIONS (1)
  - ACUTE LEUKAEMIA [None]
